FAERS Safety Report 24387181 (Version 1)
Quarter: 2024Q4

REPORT INFORMATION
  Report Type: Spontaneous
  Country: US (occurrence: US)
  Receive Date: 20241002
  Receipt Date: 20241002
  Transmission Date: 20250114
  Serious: No
  Sender: QOL
  Company Number: US-QOL Medical, LLC-2162347

PATIENT
  Age: 67 Year
  Sex: Male
  Weight: 75.455 kg

DRUGS (3)
  1. SUCRAID [Suspect]
     Active Substance: SACROSIDASE
     Dates: start: 20230816
  2. unknown acid reflux medication [Concomitant]
  3. UNSPECIFIED INGREDIENT [Concomitant]
     Active Substance: UNSPECIFIED INGREDIENT

REACTIONS (1)
  - Prostatic specific antigen increased [Recovering/Resolving]

NARRATIVE: CASE EVENT DATE: 20230801
